FAERS Safety Report 22155602 (Version 1)
Quarter: 2023Q1

REPORT INFORMATION
  Report Type: Spontaneous
  Country: US (occurrence: None)
  Receive Date: 20230330
  Receipt Date: 20230330
  Transmission Date: 20230418
  Serious: No
  Sender: FDA-Public Use
  Company Number: None

PATIENT
  Age: 24 Year
  Sex: Female
  Weight: 78.75 kg

DRUGS (17)
  1. BENLYSTA [Suspect]
     Active Substance: BELIMUMAB
     Indication: Systemic lupus erythematosus
     Dosage: 1 INJECTION ONCE PER WEEK SUBCUTANEOUS
     Route: 058
     Dates: start: 20230328
  2. AZATHIOPRINE [Concomitant]
     Active Substance: AZATHIOPRINE
  3. ATENOLOL [Concomitant]
     Active Substance: ATENOLOL
  4. CETIRIZINE [Concomitant]
  5. CONCERTA [Concomitant]
     Active Substance: METHYLPHENIDATE HYDROCHLORIDE
  6. DULOXETINE [Concomitant]
     Active Substance: DULOXETINE
  7. FAMOTIDINE [Concomitant]
     Active Substance: FAMOTIDINE
  8. HYDROXYZINE [Concomitant]
     Active Substance: HYDROXYZINE HYDROCHLORIDE
  9. melodetta 24fe [Concomitant]
  10. MIRENA [Concomitant]
     Active Substance: LEVONORGESTREL
  11. PREDNISONE [Concomitant]
     Active Substance: PREDNISONE
  12. TRAMADOL [Concomitant]
     Active Substance: TRAMADOL
  13. VITAMIN B12 [Concomitant]
     Active Substance: CYANOCOBALAMIN
  14. VITAMIN D3 [Concomitant]
     Active Substance: CHOLECALCIFEROL
  15. HERBALS\TURMERIC [Concomitant]
     Active Substance: HERBALS\TURMERIC
  16. ACETAMINOPHEN [Concomitant]
     Active Substance: ACETAMINOPHEN
  17. PEPTO-BISMOL [Concomitant]
     Active Substance: BISMUTH SUBSALICYLATE

REACTIONS (7)
  - Presyncope [None]
  - Hypotension [None]
  - Pyrexia [None]
  - Myalgia [None]
  - Headache [None]
  - Fatigue [None]
  - Nausea [None]

NARRATIVE: CASE EVENT DATE: 20230328
